FAERS Safety Report 5130055-0 (Version None)
Quarter: 2006Q4

REPORT INFORMATION
  Report Type: 
  Country: None (occurrence: None)
  Receive Date: 20061013
  Receipt Date: 20061002
  Transmission Date: 20070319
  Serious: Yes (Other)
  Sender: FDA-Public Use
  Company Number: 2006119499

PATIENT
  Sex: Male

DRUGS (1)
  1. ALPRAZOLAM [Suspect]
     Indication: ANXIETY
     Dosage: 0.25 MG (0.125 MG, 2 IN 1 D), ORAL
     Route: 048
     Dates: start: 20050101

REACTIONS (3)
  - RESORPTION BONE INCREASED [None]
  - TOOTH DISORDER [None]
  - TOOTH FRACTURE [None]
